FAERS Safety Report 8595941-8 (Version None)
Quarter: 2012Q3

REPORT INFORMATION
  Report Type: 
  Country: None (occurrence: None)
  Receive Date: 20120807
  Receipt Date: 20120807
  Transmission Date: 20120928
  Serious: Yes (Life-Threatening)
  Sender: FDA-Public Use
  Company Number: None

PATIENT
  Age: 67 Year
  Sex: Female
  Weight: 54.4316 kg

DRUGS (1)
  1. VOLTAREN [Suspect]
     Indication: ARTHRITIS
     Dosage: MEASURED AMT. ACCORDING TO RULER _1-2 /DAY TOPICAL
     Dates: start: 20100315, end: 20100415

REACTIONS (1)
  - ABDOMINAL PAIN [None]
